FAERS Safety Report 14907833 (Version 2)
Quarter: 2018Q2

REPORT INFORMATION
  Report Type: Spontaneous
  Country: AU (occurrence: AU)
  Receive Date: 20180517
  Receipt Date: 20180604
  Transmission Date: 20180711
  Serious: Yes (Other)
  Sender: FDA-Public Use
  Company Number: AU-CELGENEUS-AUS-20180502048

PATIENT
  Sex: Female

DRUGS (4)
  1. ABRAXANE [Suspect]
     Active Substance: PACLITAXEL
     Indication: METASTATIC NEOPLASM
  2. MABTHERA [Concomitant]
     Active Substance: RITUXIMAB
     Indication: METASTATIC NEOPLASM
  3. MABTHERA [Concomitant]
     Active Substance: RITUXIMAB
     Indication: BREAST CANCER
     Dosage: 700 MILLIGRAM
     Route: 041
  4. ABRAXANE [Suspect]
     Active Substance: PACLITAXEL
     Indication: BREAST CANCER
     Route: 041
     Dates: start: 201705

REACTIONS (2)
  - Cytopenia [Unknown]
  - Renal disorder [Unknown]
